FAERS Safety Report 8339341 (Version 5)
Quarter: 2022Q1

REPORT INFORMATION
  Report Type: Spontaneous
  Country: US (occurrence: US)
  Receive Date: 20120117
  Receipt Date: 20220110
  Transmission Date: 20220424
  Serious: Yes (Hospitalization, Other)
  Sender: FDA-Public Use
  Company Number: US-PFIZER INC-2012009647

PATIENT
  Age: 71 Year
  Sex: Female
  Weight: 90.717 kg

DRUGS (7)
  1. HALCION [Suspect]
     Active Substance: TRIAZOLAM
     Indication: Sleep disorder
     Dosage: 0.25 MG, 1X/DAY
     Route: 048
     Dates: start: 1980
  2. HALCION [Suspect]
     Active Substance: TRIAZOLAM
     Dosage: 5 MG, 1X/DAY, (TWO A DAY AT NIGHT)
     Route: 048
  3. HALCION [Suspect]
     Active Substance: TRIAZOLAM
     Dosage: 0.25 MG, 2X/DAY (TWICE PER DAY)
     Route: 048
  4. HALCION [Suspect]
     Active Substance: TRIAZOLAM
     Dosage: 0.25 MG TAKE ONE OR TWO TABLETS
     Route: 048
  5. HALCION [Suspect]
     Active Substance: TRIAZOLAM
     Dosage: 0.25 MG, 1X/DAY (ONCE PER DAY)
     Route: 048
  6. HALCION [Suspect]
     Active Substance: TRIAZOLAM
     Dosage: 0.5 MG, DAILY (0.25 MG TABLETS)
     Route: 048
  7. TRAMADOL [Concomitant]
     Active Substance: TRAMADOL
     Indication: Pain
     Dosage: UNK

REACTIONS (17)
  - Arthritis [Unknown]
  - Macular degeneration [Not Recovered/Not Resolved]
  - Drug dependence [Not Recovered/Not Resolved]
  - Therapeutic product effect incomplete [Not Recovered/Not Resolved]
  - Off label use [Unknown]
  - Product use issue [Unknown]
  - Product prescribing error [Unknown]
  - Hypertension [Unknown]
  - Fall [Recovering/Resolving]
  - Impaired driving ability [Unknown]
  - Arthropathy [Not Recovered/Not Resolved]
  - Weight increased [Unknown]
  - Feeling abnormal [Unknown]
  - Somnolence [Unknown]
  - Cardiac disorder [Unknown]
  - Headache [Not Recovered/Not Resolved]
  - Weight increased [Unknown]

NARRATIVE: CASE EVENT DATE: 20060101
